FAERS Safety Report 15919830 (Version 1)
Quarter: 2019Q1

REPORT INFORMATION
  Report Type: Spontaneous
  Country: DE (occurrence: DE)
  Receive Date: 20190205
  Receipt Date: 20190205
  Transmission Date: 20190417
  Serious: Yes (Death, Congenital Anomaly, Other)
  Sender: FDA-Public Use
  Company Number: DE-MYLANLABS-2019M1010242

PATIENT
  Sex: Male
  Weight: .35 kg

DRUGS (9)
  1. PANTOPRAZOLE [Suspect]
     Active Substance: PANTOPRAZOLE
     Indication: GASTRITIS PROPHYLAXIS
     Dosage: 40 MILLIGRAM, QD
     Route: 064
  2. MIFEGYNE [Concomitant]
     Active Substance: MIFEPRISTONE
     Indication: ABORTION INDUCED
     Dosage: UNK
     Route: 064
     Dates: start: 20180502, end: 20180503
  3. TORASEMID [Concomitant]
     Active Substance: TORSEMIDE
     Indication: HYPERTENSION
     Route: 064
  4. METOPROLOL. [Suspect]
     Active Substance: METOPROLOL
     Indication: HYPERTENSION
     Dosage: 190 [MG/D ]/ INITIA 2 X 95MG/D, THEN DOSAGE DECREASE TO 2 X 47.5MG/D
     Route: 064
     Dates: start: 20171209, end: 20180504
  5. DORZOLAMIDE [Concomitant]
     Active Substance: DORZOLAMIDE
     Indication: GLAUCOMA
     Route: 064
  6. LAMOTRIGINE. [Suspect]
     Active Substance: LAMOTRIGINE
     Indication: EPILEPSY
     Dosage: 100 [MG/D ]/ 50 TO 100 MG/D
     Route: 064
     Dates: start: 20171209, end: 20180504
  7. CANDESARTAN. [Suspect]
     Active Substance: CANDESARTAN
     Indication: HYPERTENSION
     Dosage: 32 MILLIGRAM, QD
     Route: 064
  8. NEPRESOL                           /00017902/ [Suspect]
     Active Substance: DIHYDRALAZINE SULFATE
     Indication: HYPERTENSION
     Dosage: 50 MILLIGRAM, QD
     Route: 064
     Dates: start: 20171209, end: 20180504
  9. CERGEM [Concomitant]
     Active Substance: GEMEPROST
     Indication: ABORTION INDUCED
     Dosage: UNK
     Route: 064
     Dates: start: 20180502, end: 20180503

REACTIONS (7)
  - Single umbilical artery [Fatal]
  - Congenital muscle absence [Fatal]
  - Congenital vas deferens absence [Fatal]
  - Pulmonary hypoplasia [Fatal]
  - Joint contracture [Fatal]
  - Potter^s syndrome [Fatal]
  - Foetal exposure during pregnancy [Recovered/Resolved]
